FAERS Safety Report 7780902-9 (Version None)
Quarter: 2011Q3

REPORT INFORMATION
  Report Type: 
  Country: None (occurrence: None)
  Receive Date: 20110927
  Receipt Date: 20110923
  Transmission Date: 20111222
  Serious: Yes (Hospitalization)
  Sender: FDA-Public Use
  Company Number: CA-ABBOTT-11P-028-0851641-00

PATIENT
  Sex: Male

DRUGS (3)
  1. HUMIRA [Suspect]
     Indication: INTESTINAL FISTULA
     Dosage: 80MG
     Route: 058
  2. HUMIRA [Suspect]
     Indication: CROHN'S DISEASE
     Dosage: 160MG LOADING DOSE
     Route: 058
  3. HUMIRA [Suspect]
     Route: 058

REACTIONS (8)
  - MANIA [None]
  - MENTAL STATUS CHANGES [None]
  - HOSPITALISATION [None]
  - HYPOPHAGIA [None]
  - ABNORMAL BEHAVIOUR [None]
  - SUICIDAL IDEATION [None]
  - HOMICIDAL IDEATION [None]
  - AFFECT LABILITY [None]
